FAERS Safety Report 12693721 (Version 1)
Quarter: 2016Q3

REPORT INFORMATION
  Report Type: Spontaneous
  Country: US (occurrence: US)
  Receive Date: 20160829
  Receipt Date: 20160829
  Transmission Date: 20161109
  Serious: No
  Sender: FDA-Public Use
  Company Number: US-PFIZER INC-2016387489

PATIENT
  Age: 14 Year
  Sex: Male
  Weight: 45.35 kg

DRUGS (1)
  1. GENOTROPIN [Suspect]
     Active Substance: SOMATROPIN
     Indication: BLOOD GROWTH HORMONE
     Dosage: ONCE AT NIGHT AND 6 DAYS OUT OF THE WEEK

REACTIONS (2)
  - Nasal oedema [Not Recovered/Not Resolved]
  - Swelling face [Not Recovered/Not Resolved]
